FAERS Safety Report 16251946 (Version 1)
Quarter: 2019Q2

REPORT INFORMATION
  Report Type: Spontaneous
  Country: AR (occurrence: AR)
  Receive Date: 20190429
  Receipt Date: 20190429
  Transmission Date: 20190711
  Serious: Yes (Death)
  Sender: FDA-Public Use
  Company Number: AR-PFIZER INC-2019183301

PATIENT
  Age: 47 Year
  Sex: Female

DRUGS (1)
  1. IBRANCE [Suspect]
     Active Substance: PALBOCICLIB
     Indication: BREAST CANCER METASTATIC
     Dosage: 125 MG, CYCLIC (DAILY, 3 WEEKS ON/1 WEEK OFF)
     Dates: start: 20181013

REACTIONS (1)
  - Death [Fatal]

NARRATIVE: CASE EVENT DATE: 20190416
